FAERS Safety Report 16304947 (Version 1)
Quarter: 2019Q2

REPORT INFORMATION
  Report Type: Spontaneous
  Country: US (occurrence: US)
  Receive Date: 20190513
  Receipt Date: 20190513
  Transmission Date: 20190711
  Serious: No
  Sender: FDA-Public Use
  Company Number: US-009507513-1905USA001744

PATIENT
  Age: 72 Year
  Sex: Female

DRUGS (1)
  1. STEGLATRO [Suspect]
     Active Substance: ERTUGLIFLOZIN PIDOLATE
     Indication: HYPERGLYCAEMIA
     Route: 048

REACTIONS (2)
  - Blood glucose abnormal [Unknown]
  - Orthostatic hypotension [Recovered/Resolved]
